FAERS Safety Report 25223653 (Version 1)
Quarter: 2025Q2

REPORT INFORMATION
  Report Type: Report from Study
  Country: DE (occurrence: DE)
  Receive Date: 20250422
  Receipt Date: 20250422
  Transmission Date: 20250717
  Serious: Yes (Other)
  Sender: FRESENIUS KABI
  Company Number: DE-FreseniusKabi-FK202505537

PATIENT
  Sex: Female

DRUGS (1)
  1. IDACIO [Suspect]
     Active Substance: ADALIMUMAB-AACF
     Indication: Rheumatoid arthritis
     Route: 065

REACTIONS (3)
  - Rheumatoid arthritis [Recovered/Resolved]
  - Iron deficiency anaemia [Recovered/Resolved]
  - Dermatitis allergic [Recovered/Resolved]

NARRATIVE: CASE EVENT DATE: 20240311
